FAERS Safety Report 21239739 (Version 1)
Quarter: 2022Q3

REPORT INFORMATION
  Report Type: Spontaneous
  Country: US (occurrence: None)
  Receive Date: 20220820
  Receipt Date: 20220820
  Transmission Date: 20221026
  Serious: No
  Sender: FDA-Public Use
  Company Number: None

PATIENT
  Age: 39 Year
  Sex: Female
  Weight: 54.45 kg

DRUGS (7)
  1. GUANFACINE HYDROCHLORIDE [Suspect]
     Active Substance: GUANFACINE HYDROCHLORIDE
     Indication: Attention deficit hyperactivity disorder
     Dosage: OTHER QUANTITY : 1 TABLET(S);?FREQUENCY : AT BEDTIME;?
     Route: 048
     Dates: start: 20220802, end: 20220811
  2. LIOTHYRONINE [Concomitant]
     Active Substance: LIOTHYRONINE
  3. LEVOTHYROXINE [Concomitant]
     Active Substance: LEVOTHYROXINE
  4. ADVIL [Concomitant]
     Active Substance: IBUPROFEN
  5. VITAFUSION WOMENS MULTI-VITAMIN [Concomitant]
  6. CYCBIOTIKA OMEGA [Concomitant]
  7. CYMBIOTIA D3+ K2+ CQ10 [Concomitant]

REACTIONS (8)
  - Dry mouth [None]
  - Dehydration [None]
  - Constipation [None]
  - Sensory disturbance [None]
  - Pain [None]
  - Discomfort [None]
  - Nausea [None]
  - Dizziness [None]
